FAERS Safety Report 8489008 (Version 5)
Quarter: 2012Q4

REPORT INFORMATION
  Report Type: 
  Country: DK (occurrence: DK)
  Receive Date: 20120402
  Receipt Date: 20121105
  Transmission Date: 20130627
  Serious: Yes (Disabling, Other)
  Sender: FDA-Public Use
  Company Number: DK-ABBOTT-12P-044-0919456-00

PATIENT
  Sex: Female
  Weight: 60 kg

DRUGS (3)
  1. HUMIRA 40 MG/ 0.8 ML PRE-FILLED SYRINGE [Suspect]
     Indication: RHEUMATOID ARTHRITIS
     Dates: start: 20080922, end: 20090604
  2. ENBREL [Concomitant]
     Indication: PRODUCT USED FOR UNKNOWN INDICATION
     Dates: start: 20090714, end: 20100122
  3. ROACTERMA [Concomitant]
     Indication: RHEUMATOID ARTHRITIS
     Dates: start: 20100414

REACTIONS (4)
  - Peripheral sensory neuropathy [Not Recovered/Not Resolved]
  - Hip arthroplasty [Unknown]
  - Loss of employment [Unknown]
  - Rheumatoid arthritis [Unknown]
